FAERS Safety Report 15468404 (Version 1)
Quarter: 2018Q4

REPORT INFORMATION
  Report Type: Spontaneous
  Country: TH (occurrence: TH)
  Receive Date: 20181005
  Receipt Date: 20181005
  Transmission Date: 20190204
  Serious: Yes (Life-Threatening, Other)
  Sender: FDA-Public Use
  Company Number: PHHY2018TH116277

PATIENT
  Sex: Female

DRUGS (2)
  1. RITALIN [Suspect]
     Active Substance: METHYLPHENIDATE HYDROCHLORIDE
     Indication: PSYCHOMOTOR HYPERACTIVITY
     Dosage: UNK
     Route: 065
  2. RITALIN [Suspect]
     Active Substance: METHYLPHENIDATE HYDROCHLORIDE
     Indication: DAYDREAMING
     Dosage: TAKING IT MORE THAN IT PRESCRIBED
     Route: 065

REACTIONS (12)
  - Myocardial infarction [Unknown]
  - Chest pain [Unknown]
  - Stress [Unknown]
  - Overdose [Unknown]
  - Sleep disorder [Unknown]
  - Off label use [Unknown]
  - Drug dependence [Unknown]
  - Nausea [Unknown]
  - Heart rate increased [Unknown]
  - Feeling abnormal [Unknown]
  - Dizziness [Unknown]
  - Blood pressure inadequately controlled [Unknown]
